FAERS Safety Report 7196753-2 (Version None)
Quarter: 2010Q4

REPORT INFORMATION
  Report Type: 
  Country: None (occurrence: None)
  Receive Date: 20101223
  Receipt Date: 20101101
  Transmission Date: 20110411
  Serious: No
  Sender: FDA-Public Use
  Company Number: US-AMGEN-USASP2010002691

PATIENT

DRUGS (1)
  1. ENBREL [Suspect]
     Indication: PSORIASIS
     Dates: start: 20071201

REACTIONS (5)
  - HEADACHE [None]
  - INSOMNIA [None]
  - PUSTULAR PSORIASIS [None]
  - VOMITING [None]
  - WEIGHT DECREASED [None]
